FAERS Safety Report 4708315-4 (Version None)
Quarter: 2005Q2

REPORT INFORMATION
  Report Type: 
  Country: None (occurrence: None)
  Receive Date: 20050628
  Receipt Date: 20050608
  Transmission Date: 20051028
  Serious: Yes (Other)
  Sender: FDA-Public Use
  Company Number: 2005053588

PATIENT
  Age: 44 Year
  Sex: Male
  Weight: 97.5234 kg

DRUGS (5)
  1. ATGAM [Suspect]
     Indication: APLASTIC ANAEMIA
     Dosage: INTRADERMAL
     Route: 023
     Dates: start: 20050307
  2. WARFARIN SODIUM [Concomitant]
  3. ZANTAC [Concomitant]
  4. ALLOPURINOL [Concomitant]
  5. ELAVIL [Concomitant]

REACTIONS (3)
  - ERYTHEMA [None]
  - SKIN REACTION [None]
  - URTICARIA [None]
